FAERS Safety Report 4359674-6 (Version None)
Quarter: 2004Q2

REPORT INFORMATION
  Report Type: 
  Country: None (occurrence: None)
  Receive Date: 20040513
  Receipt Date: 20040430
  Transmission Date: 20050107
  Serious: Yes (Hospitalization)
  Sender: FDA-Public Use
  Company Number: 2004026973

PATIENT
  Age: 73 Year
  Sex: Male

DRUGS (6)
  1. MINIPRESS [Suspect]
     Indication: HYPERTENSION
     Dosage: 5 MG (2.5 MG, 2 IN 1 D), ORAL
     Route: 048
     Dates: start: 20040315
  2. CHLORTALIDONE (CHLORTALIDONE) [Concomitant]
  3. CALCIUM CHANNEL BLOCKERS (CALCIUM CHANNEL BLOCKERS) [Concomitant]
  4. PRAZOSIN HYDROCHLORIDE (PRAZOSIN HYDROCHLORIDE) [Concomitant]
  5. FELODIPINE [Concomitant]
  6. AMIORANONE HYDROCHLORIDE (AMIODARONE HYDROCHLORIDE) [Concomitant]

REACTIONS (3)
  - BLOOD PRESSURE DECREASED [None]
  - LOSS OF CONSCIOUSNESS [None]
  - MALAISE [None]
